FAERS Safety Report 4645671-X (Version None)
Quarter: 2005Q2

REPORT INFORMATION
  Report Type: 
  Country: None (occurrence: None)
  Receive Date: 20050331
  Receipt Date: 20050218
  Transmission Date: 20051028
  Serious: No
  Sender: FDA-Public Use
  Company Number: 05P-163-0291317-00

PATIENT
  Age: 57 Year
  Sex: Female
  Weight: 46.2669 kg

DRUGS (6)
  1. HUMIRA [Suspect]
     Indication: RHEUMATOID ARTHRITIS
     Dosage: 40 MG, 1 IN 2 WK, SUBCUTANEOUS
     Route: 058
     Dates: start: 20050210
  2. CELECOXIB [Concomitant]
  3. FLUOXETINE HCL [Concomitant]
  4. LORAZEPAM [Concomitant]
  5. ZOLPIDEM TARTRATE [Concomitant]
  6. MULTI-VITAMINS [Concomitant]

REACTIONS (3)
  - CHILLS [None]
  - HEADACHE [None]
  - NAUSEA [None]
